FAERS Safety Report 8235152-9 (Version None)
Quarter: 2012Q1

REPORT INFORMATION
  Report Type: 
  Country: None (occurrence: None)
  Receive Date: 20120326
  Receipt Date: 20120319
  Transmission Date: 20120608
  Serious: Yes (Other)
  Sender: FDA-Public Use
  Company Number: JP-VERTEX PHARMACEUTICALS INC.-AE-2012-004094

PATIENT
  Age: 49 Year
  Sex: Male

DRUGS (9)
  1. PEGINTERFERON ALFA-2A [Concomitant]
     Indication: HEPATITIS C
     Route: 058
     Dates: start: 20120124, end: 20120207
  2. REBETOL [Concomitant]
     Indication: HEPATITIS C
     Route: 048
     Dates: start: 20120124, end: 20120223
  3. REBETOL [Concomitant]
     Route: 048
     Dates: start: 20120302
  4. PREDNISOLONE [Concomitant]
     Route: 048
     Dates: start: 20120127, end: 20120129
  5. PEGINTERFERON ALFA-2A [Concomitant]
     Route: 058
     Dates: start: 20120214
  6. MUCOSTA [Concomitant]
     Dates: start: 20120124
  7. TELAVIC (TELAPREVIR) [Suspect]
     Indication: HEPATITIS C
     Route: 048
     Dates: start: 20120124
  8. REBETOL [Concomitant]
     Route: 048
     Dates: start: 20120224, end: 20120301
  9. LOXONIN [Concomitant]
     Route: 048
     Dates: start: 20120124

REACTIONS (1)
  - NEUTROPHIL COUNT DECREASED [None]
